FAERS Safety Report 9266202 (Version 1)
Quarter: 2013Q2

REPORT INFORMATION
  Report Type: Report from Study
  Country: US (occurrence: US)
  Receive Date: 20130502
  Receipt Date: 20130502
  Transmission Date: 20140414
  Serious: Yes (Other)
  Sender: FDA-Public Use
  Company Number: US-ROCHE-1218600

PATIENT
  Age: 59 Year
  Sex: Female
  Weight: 71.28 kg

DRUGS (5)
  1. XELODA [Suspect]
     Indication: COLON CANCER STAGE IV
     Route: 048
     Dates: start: 20130301
  2. AVASTIN [Suspect]
     Indication: COLON CANCER STAGE IV
     Route: 065
  3. OXALIPLATIN [Concomitant]
     Indication: COLON CANCER STAGE IV
  4. ZOFRAN [Concomitant]
  5. B6 VICOTRAT [Concomitant]
     Indication: MEDICAL DIET

REACTIONS (9)
  - Dehydration [Not Recovered/Not Resolved]
  - Skin discolouration [Not Recovered/Not Resolved]
  - Nausea [Not Recovered/Not Resolved]
  - Diarrhoea [Not Recovered/Not Resolved]
  - Vomiting [Not Recovered/Not Resolved]
  - Limb discomfort [Not Recovered/Not Resolved]
  - Dysphagia [Not Recovered/Not Resolved]
  - Weight decreased [Not Recovered/Not Resolved]
  - Pain in extremity [Not Recovered/Not Resolved]
